FAERS Safety Report 6668722-X (Version None)
Quarter: 2010Q2

REPORT INFORMATION
  Report Type: 
  Country: None (occurrence: None)
  Receive Date: 20100406
  Receipt Date: 20100330
  Transmission Date: 20101027
  Serious: Yes (Other)
  Sender: FDA-Public Use
  Company Number: US-SANOFI-AVENTIS-2010SA009021

PATIENT
  Age: 56 Year
  Sex: Female

DRUGS (6)
  1. SOLOSTAR [Suspect]
     Dates: start: 20071001
  2. LANTUS [Suspect]
     Indication: DIABETES MELLITUS
     Dosage: DOSE:25 UNIT(S)
     Route: 058
     Dates: start: 20071024
  3. PROPRANOLOL [Concomitant]
     Dates: start: 20000520
  4. NORTRIPTYLINE HCL [Concomitant]
     Dates: start: 19991124
  5. LEVOTHYROXINE SODIUM [Concomitant]
     Dates: start: 20010627
  6. LISINOPRIL [Concomitant]
     Dates: start: 20071024

REACTIONS (1)
  - HYPOGLYCAEMIA [None]
